FAERS Safety Report 23047026 (Version 1)
Quarter: 2023Q4

REPORT INFORMATION
  Report Type: Report from Study
  Country: KR (occurrence: None)
  Receive Date: 20231009
  Receipt Date: 20231009
  Transmission Date: 20240110
  Serious: Yes (Death, Other)
  Sender: FDA-Public Use
  Company Number: 2023A228698

PATIENT

DRUGS (2)
  1. GEFITINIB [Suspect]
     Active Substance: GEFITINIB
     Dosage: UNKNOWN
     Route: 048
  2. ERLOTINIB [Suspect]
     Active Substance: ERLOTINIB
     Dosage: UNKNOWN

REACTIONS (2)
  - Death [Fatal]
  - Disease recurrence [Unknown]
